FAERS Safety Report 13266839 (Version 1)
Quarter: 2017Q1

REPORT INFORMATION
  Report Type: Spontaneous
  Country: SE (occurrence: SE)
  Receive Date: 20170224
  Receipt Date: 20170224
  Transmission Date: 20170428
  Serious: Yes (Hospitalization, Other)
  Sender: FDA-Public Use
  Company Number: SE-ABBVIE-17K-150-1882850-00

PATIENT
  Age: 13 Year
  Sex: Male

DRUGS (6)
  1. BRICANYL [Concomitant]
     Active Substance: TERBUTALINE SULFATE
     Indication: ASTHMA
     Route: 055
     Dates: start: 2016
  2. PNEUMOVAX 23 [Concomitant]
     Active Substance: PNEUMOCOCCAL VACCINE, POLYVALENT 23
     Indication: PRODUCT USED FOR UNKNOWN INDICATION
     Dates: start: 20170210, end: 20170210
  3. URSOFALK [Concomitant]
     Active Substance: URSODIOL
     Indication: HEPATITIS
     Dates: start: 201609
  4. GIONA EASYHALER [Concomitant]
     Indication: ASTHMA
     Route: 055
     Dates: start: 201609
  5. HUMIRA [Suspect]
     Active Substance: ADALIMUMAB
     Indication: PSORIASIS
  6. HUMIRA [Suspect]
     Active Substance: ADALIMUMAB
     Indication: ARTHRITIS
     Route: 058
     Dates: start: 20161021

REACTIONS (7)
  - Respiratory failure [Unknown]
  - Pyrexia [Unknown]
  - Respiratory tract congestion [Unknown]
  - Pneumonitis [Unknown]
  - Skin infection [Recovering/Resolving]
  - C-reactive protein increased [Unknown]
  - Fatigue [Unknown]

NARRATIVE: CASE EVENT DATE: 20161115
